FAERS Safety Report 8418441-4 (Version None)
Quarter: 2012Q2

REPORT INFORMATION
  Report Type: 
  Country: None (occurrence: None)
  Receive Date: 20120607
  Receipt Date: 20120604
  Transmission Date: 20120825
  Serious: Yes (Other)
  Sender: FDA-Public Use
  Company Number: FR-PFIZER INC-2012035358

PATIENT
  Age: 40 Year
  Sex: Female
  Weight: 52.5 kg

DRUGS (1)
  1. VARENICLINE TARTRATE [Suspect]
     Indication: SMOKING CESSATION THERAPY
     Dosage: 1 MG, 1X/DAY
     Dates: start: 20101020, end: 20110101

REACTIONS (3)
  - MANIA [None]
  - INSOMNIA [None]
  - WITHDRAWAL SYNDROME [None]
